FAERS Safety Report 9878456 (Version 1)
Quarter: 2014Q1

REPORT INFORMATION
  Report Type: Spontaneous
  Country: US (occurrence: US)
  Receive Date: 20140206
  Receipt Date: 20140206
  Transmission Date: 20141002
  Serious: No
  Sender: FDA-Public Use
  Company Number: US-ALLERGAN-1311963US

PATIENT
  Sex: Male

DRUGS (4)
  1. BOTOX [Suspect]
     Indication: PRODUCT USED FOR UNKNOWN INDICATION
     Dosage: UNK
     Dates: start: 20130806, end: 20130806
  2. ANCEF /00288502/ [Suspect]
     Indication: PREOPERATIVE CARE
     Dosage: UNK
     Dates: start: 20130806
  3. LIDOCAINE [Suspect]
     Indication: PREOPERATIVE CARE
     Dosage: UNK
     Dates: start: 20130806
  4. ANTIBIOTICS NOS [Suspect]
     Indication: PREOPERATIVE CARE
     Dosage: UNK
     Dates: start: 20130806

REACTIONS (1)
  - Rash [Recovered/Resolved]
